FAERS Safety Report 5375710-2 (Version None)
Quarter: 2007Q2

REPORT INFORMATION
  Report Type: 
  Country: None (occurrence: None)
  Receive Date: 20070628
  Receipt Date: 20070619
  Transmission Date: 20071010
  Serious: Yes (Hospitalization)
  Sender: FDA-Public Use
  Company Number: 2007-02928

PATIENT
  Age: 46 Year
  Sex: Male

DRUGS (6)
  1. COLCHICUM JTL LIQ [Suspect]
     Indication: INTENTIONAL OVERDOSE
     Dosage: ORAL
     Route: 048
     Dates: start: 20070101
  2. COLCHICUM JTL LIQ [Suspect]
     Indication: SUICIDE ATTEMPT
     Dosage: ORAL
     Route: 048
     Dates: start: 20070101
  3. ALLOPURINOL [Suspect]
     Indication: INTENTIONAL OVERDOSE
     Dates: start: 20070101
  4. ALLOPURINOL [Suspect]
     Indication: SUICIDE ATTEMPT
     Dates: start: 20070101
  5. NAPROSYN [Suspect]
     Indication: INTENTIONAL OVERDOSE
  6. NAPROSYN [Suspect]
     Indication: SUICIDE ATTEMPT

REACTIONS (3)
  - HYPOTENSION [None]
  - INTENTIONAL OVERDOSE [None]
  - METABOLIC ACIDOSIS [None]
